FAERS Safety Report 6979440-2 (Version None)
Quarter: 2010Q3

REPORT INFORMATION
  Report Type: 
  Country: None (occurrence: None)
  Receive Date: 20100910
  Receipt Date: 20100910
  Transmission Date: 20110219
  Serious: Yes (Other)
  Sender: FDA-Public Use
  Company Number: None

PATIENT
  Sex: Male

DRUGS (1)
  1. HUMATROPE [Suspect]
     Dosage: 0.4MG DAILY SUBCUTANEOUS
     Route: 058
     Dates: start: 20090206, end: 20100819

REACTIONS (1)
  - OEDEMA PERIPHERAL [None]
